FAERS Safety Report 7360867-4 (Version None)
Quarter: 2011Q1

REPORT INFORMATION
  Report Type: 
  Country: None (occurrence: None)
  Receive Date: 20110310
  Receipt Date: 20110225
  Transmission Date: 20110831
  Serious: Yes (Other)
  Sender: FDA-Public Use
  Company Number: AMAG201100038

PATIENT
  Age: 55 Year
  Sex: Male
  Weight: 93.4 kg

DRUGS (19)
  1. ADVAIR (FLUTICASONE PROPIONATE, SALMETEROL XINAFOATE) INHALER [Concomitant]
  2. ALBUTEROL (SALBUTAMOL SULFATE) INHALER [Concomitant]
  3. LANTUS [Concomitant]
  4. SINGULAIR [Concomitant]
  5. ATARAX [Concomitant]
  6. DUONEB (IPRATROPIUM BROMIDE, SALBUTAMOL SULFATE) INHALER [Concomitant]
  7. FOLIC ACID [Concomitant]
  8. FERROUS SULFATE TAB [Concomitant]
  9. THEOPHYLLINE [Concomitant]
  10. VITAMIN D [Concomitant]
  11. AMITRIPTYLINE HCL [Concomitant]
  12. CLONAZEPAM [Concomitant]
  13. METOPROLOL TARTRATE [Concomitant]
  14. PROCRIT [Concomitant]
  15. FERAHEME [Suspect]
     Indication: IRON DEFICIENCY ANAEMIA
     Dosage: 510 MG, SINGLE; INTRAVENOUS
     Route: 042
     Dates: start: 20110216, end: 20110216
  16. POTASSIUM CITRATE [Concomitant]
  17. ZEMPLAR [Concomitant]
  18. FEBUXOSTAT (ULORIC) [Concomitant]
  19. OMEPRAZOLE [Concomitant]

REACTIONS (1)
  - MENTAL STATUS CHANGES [None]
